FAERS Safety Report 24085783 (Version 3)
Quarter: 2025Q4

REPORT INFORMATION
  Report Type: Spontaneous
  Country: US (occurrence: US)
  Receive Date: 20240712
  Receipt Date: 20251114
  Transmission Date: 20260118
  Serious: No
  Sender: ABBVIE
  Company Number: US-ABBVIE-5837273

PATIENT
  Age: 76 Year
  Sex: Female

DRUGS (1)
  1. ESTRACE [Suspect]
     Active Substance: ESTRADIOL
     Indication: Product used for unknown indication
     Route: 061
     Dates: start: 2021, end: 20240628

REACTIONS (2)
  - Erythema [Recovering/Resolving]
  - Cyst [Unknown]

NARRATIVE: CASE EVENT DATE: 20240627
